FAERS Safety Report 9300881 (Version 1)
Quarter: 2013Q2

REPORT INFORMATION
  Report Type: Spontaneous
  Country: US (occurrence: None)
  Receive Date: 20130520
  Receipt Date: 20130520
  Transmission Date: 20140414
  Serious: Yes (Other)
  Sender: FDA-Public Use
  Company Number: None

PATIENT
  Age: 4 Year
  Sex: Female
  Weight: 15.88 kg

DRUGS (3)
  1. LUPRON [Suspect]
     Indication: PRECOCIOUS PUBERTY
     Route: 030
     Dates: start: 20010501, end: 20070618
  2. PROZAC [Concomitant]
  3. CALCIUM SUPPLEMENT [Concomitant]

REACTIONS (5)
  - Aggression [None]
  - Migraine [None]
  - Bone density decreased [None]
  - Depression [None]
  - Suicidal ideation [None]
